FAERS Safety Report 9096659 (Version 2)
Quarter: 2013Q4

REPORT INFORMATION
  Report Type: Spontaneous
  Country: JP (occurrence: None)
  Receive Date: 20130125
  Receipt Date: 20131105
  Transmission Date: 20140711
  Serious: Yes (Hospitalization)
  Sender: FDA-Public Use
  Company Number: AG-2013-0071

PATIENT
  Age: 72 Year
  Sex: Female
  Weight: 42 kg

DRUGS (2)
  1. CHLORAMBUCIL [Suspect]
     Indication: CHRONIC LYMPHOCYTIC LEUKAEMIA
     Route: 048
     Dates: start: 20121210, end: 20121216
  2. OFATUMUMAB [Suspect]
     Indication: CHRONIC LYMPHOCYTIC LEUKAEMIA
     Dates: start: 20121210, end: 20121210

REACTIONS (2)
  - Hypoxia [None]
  - Blood pressure decreased [None]
